FAERS Safety Report 6712100-1 (Version None)
Quarter: 2010Q2

REPORT INFORMATION
  Report Type: 
  Country: None (occurrence: None)
  Receive Date: 20100505
  Receipt Date: 20100427
  Transmission Date: 20101027
  Serious: Yes (Other)
  Sender: FDA-Public Use
  Company Number: DE-PFIZER INC-2010047397

PATIENT
  Age: 42 Year
  Sex: Male
  Weight: 76 kg

DRUGS (3)
  1. LYRICA [Suspect]
     Indication: PAIN
     Dosage: 300 MG, DAILY
     Route: 048
     Dates: start: 20091126, end: 20100320
  2. LYRICA [Suspect]
     Indication: PERIARTHRITIS
  3. MIRTAZAPINE [Concomitant]
     Dosage: 45 MG, 1X/DAY AT NIGHT
     Route: 048

REACTIONS (1)
  - GAMMA-GLUTAMYLTRANSFERASE INCREASED [None]
